FAERS Safety Report 7028062-6 (Version None)
Quarter: 2010Q3

REPORT INFORMATION
  Report Type: 
  Country: None (occurrence: None)
  Receive Date: 20100930
  Receipt Date: 20100923
  Transmission Date: 20110219
  Serious: Yes (Other)
  Sender: FDA-Public Use
  Company Number: 2010SP051344

PATIENT
  Age: 13 Year
  Sex: Female

DRUGS (2)
  1. NOXAFIL [Suspect]
     Indication: CANDIDIASIS
     Dates: start: 20100920, end: 20100901
  2. NOXAFIL [Suspect]
     Indication: DRUG RESISTANCE
     Dates: start: 20100920, end: 20100901

REACTIONS (2)
  - CONVULSION [None]
  - TACHYCARDIA [None]
